FAERS Safety Report 14306885 (Version 1)
Quarter: 2017Q4

REPORT INFORMATION
  Report Type: Report from Study
  Country: US (occurrence: US)
  Receive Date: 20171220
  Receipt Date: 20171220
  Transmission Date: 20180321
  Serious: Yes (Other)
  Sender: FDA-Public Use
  Company Number: US-ROCHE-1818739

PATIENT
  Sex: Male

DRUGS (8)
  1. ESBRIET [Suspect]
     Active Substance: PIRFENIDONE
     Dosage: 2 CAPSULE BY MOUTH 3 TIMES A DAY WITH FOOD
     Route: 048
  2. PREDNISONE. [Concomitant]
     Active Substance: PREDNISONE
     Dosage: AS NEEDED
     Route: 065
  3. IMURAN [Concomitant]
     Active Substance: AZATHIOPRINE
     Route: 065
     Dates: start: 201002, end: 201007
  4. IBUPROFEN. [Concomitant]
     Active Substance: IBUPROFEN
     Dosage: AS NEEDED
     Route: 065
  5. ESBRIET [Suspect]
     Active Substance: PIRFENIDONE
     Dosage: 3 CAPSULE BY MOUTH 3 TIMES A DAY WITH FOOD
     Route: 048
  6. PEPCID (UNITED STATES) [Concomitant]
     Route: 065
  7. MYCOPHENOLATE MOFETIL. [Suspect]
     Active Substance: MYCOPHENOLATE MOFETIL
     Indication: PRODUCT USED FOR UNKNOWN INDICATION
     Route: 065
     Dates: start: 200912
  8. ESBRIET [Suspect]
     Active Substance: PIRFENIDONE
     Indication: IDIOPATHIC PULMONARY FIBROSIS
     Dosage: 1 CAPSULE BY MOUTH 3 TIMES A DAY WITH FOOD
     Route: 048

REACTIONS (15)
  - Deep vein thrombosis [Unknown]
  - Neuropathy peripheral [Unknown]
  - Dizziness [Unknown]
  - Paraesthesia [Unknown]
  - Feeling jittery [Unknown]
  - Ill-defined disorder [Unknown]
  - Fatigue [Unknown]
  - Sinus disorder [Unknown]
  - Neuralgia [Unknown]
  - Terminal insomnia [Unknown]
  - Pulmonary embolism [Unknown]
  - Decreased appetite [Unknown]
  - Clubbing [Unknown]
  - Upper respiratory tract infection [Unknown]
  - Dyspepsia [Unknown]
